FAERS Safety Report 26147424 (Version 1)
Quarter: 2025Q4

REPORT INFORMATION
  Report Type: Spontaneous
  Country: US (occurrence: US)
  Receive Date: 20251211
  Receipt Date: 20251211
  Transmission Date: 20260117
  Serious: Yes (Hospitalization)
  Sender: ELI LILLY AND COMPANY
  Company Number: US-ELI_LILLY_AND_COMPANY-US202512008873

PATIENT
  Age: 45 Year

DRUGS (1)
  1. MOUNJARO [Suspect]
     Active Substance: TIRZEPATIDE
     Indication: Product used for unknown indication
     Dosage: UNK, UNKNOWN
     Route: 065
     Dates: start: 202301, end: 202304

REACTIONS (5)
  - Impaired gastric emptying [Unknown]
  - Abdominal pain [Unknown]
  - Abdominal distension [Unknown]
  - Nausea [Unknown]
  - Constipation [Unknown]
